FAERS Safety Report 6366513-0 (Version None)
Quarter: 2009Q3

REPORT INFORMATION
  Report Type: 
  Country: None (occurrence: None)
  Receive Date: 20090921
  Receipt Date: 20080604
  Transmission Date: 20100115
  Serious: Yes (Hospitalization, Other)
  Sender: FDA-Public Use
  Company Number: US-BAYER-200824422NA

PATIENT
  Age: 38 Year
  Sex: Female

DRUGS (11)
  1. CAMPATH [Suspect]
     Indication: RELAPSING-REMITTING MULTIPLE SCLEROSIS
     Dosage: TOTAL DAILY DOSE: 24 MG
     Route: 042
     Dates: start: 20080519, end: 20080523
  2. PHENERGAN [Concomitant]
  3. TIZANIDINE HCL [Concomitant]
  4. TYLENOL (CAPLET) [Concomitant]
     Dosage: II PO
     Route: 048
  5. BENADRYL [Concomitant]
     Route: 048
  6. ZANTAC [Concomitant]
     Dosage: TOTAL DAILY DOSE: 150 MG
  7. LEXAPRO [Concomitant]
     Dosage: TOTAL DAILY DOSE: 10 MG
  8. ZYRTEC [Concomitant]
  9. AXERT [Concomitant]
  10. AMBIEN [Concomitant]
     Dosage: TOTAL DAILY DOSE: 10 MG
     Route: 048
  11. PROTONIX [Concomitant]
     Dosage: TOTAL DAILY DOSE: 30 MG
     Route: 048

REACTIONS (2)
  - HYPERTENSION [None]
  - MIGRAINE [None]
